FAERS Safety Report 7798283-3 (Version None)
Quarter: 2011Q4

REPORT INFORMATION
  Report Type: 
  Country: None (occurrence: None)
  Receive Date: 20111005
  Receipt Date: 20110928
  Transmission Date: 20120403
  Serious: Yes (Other)
  Sender: FDA-Public Use
  Company Number: JP-BAXTER-2011BH028779

PATIENT
  Age: 63 Year
  Sex: Female
  Weight: 55 kg

DRUGS (7)
  1. SUPRANE [Suspect]
     Indication: MAINTENANCE OF ANAESTHESIA
     Route: 055
     Dates: start: 20110824, end: 20110824
  2. PROPOFOL [Suspect]
     Indication: INDUCTION OF ANAESTHESIA
     Route: 042
     Dates: start: 20110824, end: 20110824
  3. ROCURONIUM BROMIDE [Suspect]
     Indication: HYPOTONIA
     Route: 042
     Dates: start: 20110824, end: 20110824
  4. POPSCAINE [Suspect]
     Indication: EPIDURAL ANAESTHESIA
     Route: 008
     Dates: start: 20110824, end: 20110824
  5. SEVOFLURANE [Suspect]
     Route: 055
     Dates: start: 20110824, end: 20110824
  6. SEVOFLURANE [Suspect]
     Indication: MAINTENANCE OF ANAESTHESIA
     Route: 055
     Dates: start: 20110824, end: 20110824
  7. CEFTRIAXONE SODIUM [Suspect]
     Indication: INFECTION PROPHYLAXIS
     Route: 042
     Dates: start: 20110824, end: 20110824

REACTIONS (3)
  - NO THERAPEUTIC RESPONSE [None]
  - ANAPHYLACTIC SHOCK [None]
  - LATEX ALLERGY [None]
